FAERS Safety Report 10687575 (Version 1)
Quarter: 2015Q1

REPORT INFORMATION
  Report Type: Spontaneous
  Country: CH (occurrence: CH)
  Receive Date: 20150102
  Receipt Date: 20150102
  Transmission Date: 20150720
  Serious: Yes (Other)
  Sender: FDA-Public Use
  Company Number: CH-JNJFOC-20141216081

PATIENT
  Sex: Male
  Weight: 4 kg

DRUGS (8)
  1. DEROXAT [Suspect]
     Active Substance: PAROXETINE HYDROCHLORIDE
     Indication: PRODUCT USED FOR UNKNOWN INDICATION
     Route: 064
     Dates: start: 2013
  2. VOLTAREN [Suspect]
     Active Substance: DICLOFENAC SODIUM
     Indication: PRODUCT USED FOR UNKNOWN INDICATION
     Route: 064
     Dates: start: 2013
  3. INSULIN [Concomitant]
     Active Substance: INSULIN NOS
     Route: 064
  4. DAFALGAN [Suspect]
     Active Substance: ACETAMINOPHEN
     Indication: SPONDYLITIS
     Route: 064
     Dates: start: 2013
  5. SIMPONI [Suspect]
     Active Substance: GOLIMUMAB
     Indication: SPONDYLITIS
     Route: 064
     Dates: start: 201310, end: 201310
  6. ARCOXIA [Suspect]
     Active Substance: ETORICOXIB
     Indication: SPONDYLITIS
     Route: 064
     Dates: start: 2013
  7. ZALDIAR [Suspect]
     Active Substance: ACETAMINOPHEN\TRAMADOL HYDROCHLORIDE
     Indication: SPONDYLITIS
     Dosage: 1 (UNITS NOT REPORTED) AS REQUIRED
     Route: 064
     Dates: start: 2013
  8. HUMIRA [Suspect]
     Active Substance: ADALIMUMAB
     Indication: SPONDYLITIS
     Route: 064
     Dates: start: 201305, end: 201309

REACTIONS (1)
  - Foetal exposure during pregnancy [Recovered/Resolved]
